FAERS Safety Report 7580257-9 (Version None)
Quarter: 2011Q2

REPORT INFORMATION
  Report Type: 
  Country: None (occurrence: None)
  Receive Date: 20110629
  Receipt Date: 20110606
  Transmission Date: 20111010
  Serious: Yes (Other)
  Sender: FDA-Public Use
  Company Number: RU-ELI_LILLY_AND_COMPANY-RU201103001961

PATIENT
  Sex: Male

DRUGS (6)
  1. BYETTA [Suspect]
     Dosage: 5 UG, UNK
     Dates: start: 20110527
  2. GLURENORM [Concomitant]
     Dosage: 30 MG, 2/D
     Route: 065
     Dates: start: 20050101
  3. BYETTA [Suspect]
     Indication: TYPE 2 DIABETES MELLITUS
     Dosage: 5 UG, DAILY (1/D)
     Route: 065
     Dates: start: 20110101, end: 20110203
  4. BYETTA [Suspect]
     Dosage: 5 UG, UNKNOWN
     Route: 065
  5. BISOPROLOL FUMARATE [Concomitant]
     Dosage: 10 MG, DAILY (1/D)
     Route: 065
     Dates: start: 20070101
  6. BYETTA [Suspect]
     Dosage: 10 UG, DAILY (1/D)
     Route: 065
     Dates: start: 20110204

REACTIONS (2)
  - DERMATITIS ALLERGIC [None]
  - BLOOD GLUCOSE INCREASED [None]
